FAERS Safety Report 25094226 (Version 1)
Quarter: 2025Q1

REPORT INFORMATION
  Report Type: Spontaneous
  Country: FR (occurrence: FR)
  Receive Date: 20250319
  Receipt Date: 20250319
  Transmission Date: 20250408
  Serious: Yes (Other)
  Sender: MYLAN
  Company Number: FR-MYLANLABS-2025M1022802

PATIENT
  Age: 52 Year
  Sex: Female

DRUGS (24)
  1. NEURONTIN [Suspect]
     Active Substance: GABAPENTIN
     Indication: Neuralgia
     Dosage: 100 MILLIGRAM, TID (3 TIMES A DAY)
     Route: 048
  2. NEURONTIN [Suspect]
     Active Substance: GABAPENTIN
     Dosage: 100 MILLIGRAM, TID (3 TIMES A DAY)
  3. NEURONTIN [Suspect]
     Active Substance: GABAPENTIN
     Dosage: 100 MILLIGRAM, TID (3 TIMES A DAY)
  4. NEURONTIN [Suspect]
     Active Substance: GABAPENTIN
     Dosage: 100 MILLIGRAM, TID (3 TIMES A DAY)
     Route: 048
  5. NEURONTIN [Suspect]
     Active Substance: GABAPENTIN
     Dosage: 500 MILLIGRAM, TID
  6. NEURONTIN [Suspect]
     Active Substance: GABAPENTIN
     Dosage: 500 MILLIGRAM, TID
  7. NEURONTIN [Suspect]
     Active Substance: GABAPENTIN
     Dosage: 500 MILLIGRAM, TID
     Route: 048
  8. NEURONTIN [Suspect]
     Active Substance: GABAPENTIN
     Dosage: 500 MILLIGRAM, TID
     Route: 048
  9. NEURONTIN [Suspect]
     Active Substance: GABAPENTIN
     Dosage: 400 MILLIGRAM, TID
     Route: 048
  10. NEURONTIN [Suspect]
     Active Substance: GABAPENTIN
     Dosage: 400 MILLIGRAM, TID
  11. NEURONTIN [Suspect]
     Active Substance: GABAPENTIN
     Dosage: 400 MILLIGRAM, TID
  12. NEURONTIN [Suspect]
     Active Substance: GABAPENTIN
     Dosage: 400 MILLIGRAM, TID
     Route: 048
  13. NEURONTIN [Suspect]
     Active Substance: GABAPENTIN
     Dosage: 300 MILLIGRAM, TID
  14. NEURONTIN [Suspect]
     Active Substance: GABAPENTIN
     Dosage: 300 MILLIGRAM, TID
  15. NEURONTIN [Suspect]
     Active Substance: GABAPENTIN
     Dosage: 300 MILLIGRAM, TID
     Route: 048
  16. NEURONTIN [Suspect]
     Active Substance: GABAPENTIN
     Dosage: 300 MILLIGRAM, TID
     Route: 048
  17. NEURONTIN [Suspect]
     Active Substance: GABAPENTIN
     Dosage: 200 MILLIGRAM, TID
  18. NEURONTIN [Suspect]
     Active Substance: GABAPENTIN
     Dosage: 200 MILLIGRAM, TID
  19. NEURONTIN [Suspect]
     Active Substance: GABAPENTIN
     Dosage: 200 MILLIGRAM, TID
     Route: 048
  20. NEURONTIN [Suspect]
     Active Substance: GABAPENTIN
     Dosage: 200 MILLIGRAM, TID
     Route: 048
  21. NEURONTIN [Suspect]
     Active Substance: GABAPENTIN
     Dosage: 100 MILLIGRAM, TID
  22. NEURONTIN [Suspect]
     Active Substance: GABAPENTIN
     Dosage: 100 MILLIGRAM, TID
     Route: 048
  23. NEURONTIN [Suspect]
     Active Substance: GABAPENTIN
     Dosage: 100 MILLIGRAM, TID
  24. NEURONTIN [Suspect]
     Active Substance: GABAPENTIN
     Dosage: 100 MILLIGRAM, TID
     Route: 048

REACTIONS (1)
  - Seizure [Not Recovered/Not Resolved]
